FAERS Safety Report 5463530-X (Version None)
Quarter: 2007Q3

REPORT INFORMATION
  Report Type: 
  Country: None (occurrence: None)
  Receive Date: 20070919
  Receipt Date: 20070905
  Transmission Date: 20080115
  Serious: Yes (Other)
  Sender: FDA-Public Use
  Company Number: B0487134A

PATIENT
  Age: 53 Year
  Sex: Female

DRUGS (5)
  1. TRANYLCYPROMINE SULFATE [Suspect]
     Indication: DEPRESSION
  2. TRICYCLIC ANTIDEPRESSANT [Concomitant]
  3. TRAZODONE HCL [Concomitant]
  4. PHENELZINE [Concomitant]
  5. SSRI [Concomitant]

REACTIONS (1)
  - HYPOMANIA [None]
